FAERS Safety Report 8341049-6 (Version None)
Quarter: 2012Q2

REPORT INFORMATION
  Report Type: 
  Country: None (occurrence: None)
  Receive Date: 20120507
  Receipt Date: 20120426
  Transmission Date: 20120825
  Serious: Yes (Hospitalization)
  Sender: FDA-Public Use
  Company Number: US-GLAXOSMITHKLINE-A0794739A

PATIENT
  Age: 59 Year
  Sex: Female
  Weight: 143.2 kg

DRUGS (2)
  1. AVANDAMET [Suspect]
     Indication: DIABETES MELLITUS
     Route: 048
     Dates: start: 20030406, end: 20070524
  2. AVANDIA [Suspect]
     Indication: DIABETES MELLITUS
     Dosage: 8MG PER DAY
     Route: 048
     Dates: start: 20020519, end: 20070524

REACTIONS (6)
  - ATRIAL FIBRILLATION [None]
  - OEDEMA PERIPHERAL [None]
  - MYOCARDIAL ISCHAEMIA [None]
  - FATIGUE [None]
  - CHEST PAIN [None]
  - CARDIAC FAILURE CONGESTIVE [None]
